FAERS Safety Report 8161719-2 (Version None)
Quarter: 2012Q1

REPORT INFORMATION
  Report Type: 
  Country: None (occurrence: None)
  Receive Date: 20120224
  Receipt Date: 20110204
  Transmission Date: 20120608
  Serious: No
  Sender: FDA-Public Use
  Company Number: US-BRISTOL-MYERS SQUIBB COMPANY-15531072

PATIENT
  Age: 61 Year
  Sex: Male
  Weight: 89 kg

DRUGS (3)
  1. METOCLOPRAMIDE HYDROCHLORIDE [Concomitant]
     Route: 048
  2. OMEPRAZOLE [Concomitant]
  3. METFORMIN HCL [Suspect]
     Indication: TYPE 2 DIABETES MELLITUS
     Dates: start: 20100101, end: 20100801

REACTIONS (5)
  - DIARRHOEA [None]
  - SOMNOLENCE [None]
  - ABDOMINAL DISTENSION [None]
  - FATIGUE [None]
  - VOMITING [None]
